FAERS Safety Report 11988501 (Version 1)
Quarter: 2016Q1

REPORT INFORMATION
  Report Type: Report from Study
  Country: PL (occurrence: PL)
  Receive Date: 20160202
  Receipt Date: 20160202
  Transmission Date: 20160526
  Serious: Yes (Death)
  Sender: FDA-Public Use
  Company Number: PL-SA-2016SA018187

PATIENT
  Age: 30 Year
  Sex: Male

DRUGS (6)
  1. OXALIPLATIN. [Suspect]
     Active Substance: OXALIPLATIN
     Indication: YOLK SAC TUMOUR SITE UNSPECIFIED
     Route: 065
     Dates: end: 200903
  2. PACLITAXEL. [Suspect]
     Active Substance: PACLITAXEL
     Indication: YOLK SAC TUMOUR SITE UNSPECIFIED
     Route: 065
     Dates: end: 200903
  3. CISPLATIN. [Suspect]
     Active Substance: CISPLATIN
     Indication: YOLK SAC TUMOUR SITE UNSPECIFIED
     Route: 042
     Dates: start: 2008
  4. IFOSFAMIDE. [Suspect]
     Active Substance: IFOSFAMIDE
     Indication: YOLK SAC TUMOUR SITE UNSPECIFIED
     Route: 042
     Dates: start: 2008
  5. VINBLASTINE [Suspect]
     Active Substance: VINBLASTINE
     Indication: YOLK SAC TUMOUR SITE UNSPECIFIED
     Route: 042
     Dates: start: 2008
  6. GEMCITABINE [Suspect]
     Active Substance: GEMCITABINE\GEMCITABINE HYDROCHLORIDE
     Indication: YOLK SAC TUMOUR SITE UNSPECIFIED
     Route: 065
     Dates: end: 200903

REACTIONS (2)
  - Product use issue [Unknown]
  - Disease progression [Fatal]
